FAERS Safety Report 12393320 (Version 2)
Quarter: 2016Q2

REPORT INFORMATION
  Report Type: Spontaneous
  Country: NO (occurrence: NO)
  Receive Date: 20160523
  Receipt Date: 20160623
  Transmission Date: 20160815
  Serious: Yes (Hospitalization)
  Sender: FDA-Public Use
  Company Number: NO-NOVOPROD-491749

PATIENT
  Age: 27 Year
  Sex: Female

DRUGS (8)
  1. DOTAREM [Suspect]
     Active Substance: GADOTERATE MEGLUMINE
     Indication: NUCLEAR MAGNETIC RESONANCE IMAGING
  2. GLUCAGON. [Suspect]
     Active Substance: GLUCAGON
     Indication: DIAGNOSTIC PROCEDURE
     Dosage: 1 ML, QD
     Route: 030
     Dates: start: 20160418, end: 20160418
  3. BUSCOPAN [Suspect]
     Active Substance: BUTYLSCOPOLAMINE BROMIDE
     Indication: DIAGNOSTIC PROCEDURE
     Dosage: 20 MG/ML
     Route: 042
     Dates: start: 20160418, end: 20160418
  4. DOTAREM [Suspect]
     Active Substance: GADOTERATE MEGLUMINE
     Indication: DIAGNOSTIC PROCEDURE
     Dosage: 279,3 MG/ML
     Route: 042
     Dates: start: 20160418, end: 20160418
  5. GLUCAGON. [Suspect]
     Active Substance: GLUCAGON
     Indication: GASTROINTESTINAL EXAMINATION
  6. TOILAX [Suspect]
     Active Substance: BISACODYL
     Indication: DIAGNOSTIC PROCEDURE
     Dosage: 5, ML, QD
     Route: 054
     Dates: start: 20160418, end: 20160418
  7. TOILAX [Suspect]
     Active Substance: BISACODYL
     Indication: ENEMA ADMINISTRATION
  8. BUSCOPAN [Suspect]
     Active Substance: BUTYLSCOPOLAMINE BROMIDE
     Indication: GASTROINTESTINAL EXAMINATION

REACTIONS (4)
  - Nausea [Recovered/Resolved]
  - Chills [Recovered/Resolved]
  - Headache [Recovered/Resolved]
  - Hyperventilation [Recovered/Resolved]

NARRATIVE: CASE EVENT DATE: 20160418
